FAERS Safety Report 17124244 (Version 2)
Quarter: 2019Q4

REPORT INFORMATION
  Report Type: Report from Study
  Country: US (occurrence: US)
  Receive Date: 20191206
  Receipt Date: 20191217
  Transmission Date: 20200122
  Serious: Yes (Hospitalization, Other)
  Sender: FDA-Public Use
  Company Number: US-SA-2019SA120798

PATIENT
  Age: 36 Year
  Sex: Female

DRUGS (18)
  1. PREDNISONE. [Concomitant]
     Active Substance: PREDNISONE
     Dosage: UNK UNK, UNK
  2. VITAMIN D [COLECALCIFEROL] [Concomitant]
     Active Substance: CHOLECALCIFEROL
     Dosage: UNK UNK, UNK
  3. ALEMTUZUMAB [Suspect]
     Active Substance: ALEMTUZUMAB
     Dosage: 12 MG, QD
     Route: 041
     Dates: start: 20171211, end: 20171212
  4. BACLOFEN. [Concomitant]
     Active Substance: BACLOFEN
     Dosage: UNK UNK, UNK
  5. AVONEX [Concomitant]
     Active Substance: INTERFERON BETA-1A
     Dosage: UNK UNK, UNK
  6. COPAXONE [Concomitant]
     Active Substance: GLATIRAMER ACETATE
     Dosage: UNK UNK, UNK
  7. ALEMTUZUMAB [Suspect]
     Active Substance: ALEMTUZUMAB
     Indication: MULTIPLE SCLEROSIS
     Dosage: 12 MG, QD
     Route: 041
     Dates: start: 20190415, end: 20190417
  8. FISH OIL [Concomitant]
     Active Substance: FISH OIL
     Dosage: UNK UNK, UNK
  9. VALTREX [Concomitant]
     Active Substance: VALACYCLOVIR HYDROCHLORIDE
     Dosage: UNK UNK, UNK
  10. WELLBUTRIN [Concomitant]
     Active Substance: BUPROPION HYDROCHLORIDE
     Dosage: UNK UNK, UNK
  11. PANTOPRAZOLE [Concomitant]
     Active Substance: PANTOPRAZOLE
     Dosage: UNK UNK, UNK
  12. CALTRATE [Concomitant]
     Active Substance: CALCIUM CARBONATE
     Dosage: UNK UNK, UNK
  13. TYSABRI [Concomitant]
     Active Substance: NATALIZUMAB
     Dosage: UNK UNK, UNK
  14. ALEMTUZUMAB [Suspect]
     Active Substance: ALEMTUZUMAB
     Dosage: 12 MG, QD
     Route: 041
     Dates: start: 20171204, end: 20171206
  15. CRANBERRY [VACCINIUM MACROCARPON] [Concomitant]
     Dosage: UNK UNK, UNK
  16. ZYRTEC [Concomitant]
     Active Substance: CETIRIZINE HYDROCHLORIDE
     Dosage: UNK UNK, UNK
  17. ADDERALL [Concomitant]
     Active Substance: AMPHETAMINE ASPARTATE\AMPHETAMINE SULFATE\DEXTROAMPHETAMINE SACCHARATE\DEXTROAMPHETAMINE SULFATE
     Dosage: UNK UNK, UNK
  18. VITAMIN B12 [HYDROXOCOBALAMIN] [Concomitant]
     Active Substance: HYDROXOCOBALAMIN
     Dosage: UNK UNK, UNK

REACTIONS (6)
  - Oral contusion [Unknown]
  - Immune thrombocytopenic purpura [Unknown]
  - Epistaxis [Unknown]
  - Autoimmune disorder [Unknown]
  - Platelet count decreased [Recovered/Resolved]
  - Administration site bruise [Not Recovered/Not Resolved]

NARRATIVE: CASE EVENT DATE: 20190416
